FAERS Safety Report 9440603 (Version 1)
Quarter: 2013Q3

REPORT INFORMATION
  Report Type: Spontaneous
  Country: US (occurrence: US)
  Receive Date: 20130805
  Receipt Date: 20130805
  Transmission Date: 20140515
  Serious: Yes (Hospitalization, Other)
  Sender: FDA-Public Use
  Company Number: US-PFIZER INC-2013225276

PATIENT
  Age: 39 Year
  Sex: Male

DRUGS (10)
  1. KETOROLAC TROMETHAMINE [Suspect]
     Dosage: 30 MG
     Route: 042
  2. KETOROLAC TROMETHAMINE [Suspect]
     Dosage: UNK
     Route: 030
  3. PROPOFOL [Concomitant]
     Indication: GENERAL ANAESTHESIA
     Dosage: UNK
  4. SEVOFLURANE [Concomitant]
     Indication: GENERAL ANAESTHESIA
     Dosage: UNK
  5. MIDAZOLAM [Concomitant]
     Indication: GENERAL ANAESTHESIA
     Dosage: UNK
  6. FENTANYL [Concomitant]
     Indication: GENERAL ANAESTHESIA
     Dosage: UNK
  7. ROCURONIUM [Concomitant]
     Indication: GENERAL ANAESTHESIA
     Dosage: UNK
  8. NEOSTIGMINE [Concomitant]
     Indication: ANAESTHESIA REVERSAL
     Dosage: UNK
  9. GLYCOPYRROLATE [Concomitant]
     Indication: ANAESTHESIA REVERSAL
     Dosage: UNK
  10. MORPHINE [Concomitant]
     Dosage: 12 MG (TOTAL)
     Route: 042

REACTIONS (1)
  - Pulmonary alveolar haemorrhage [Recovered/Resolved]
